FAERS Safety Report 9088294 (Version 1)
Quarter: 2013Q1

REPORT INFORMATION
  Report Type: Report from Study
  Country: US (occurrence: US)
  Receive Date: 20130131
  Receipt Date: 20130131
  Transmission Date: 20140127
  Serious: No
  Sender: FDA-Public Use
  Company Number: US-ABBOTT-12P-163-0997870-00

PATIENT
  Age: 72 Year
  Sex: Male

DRUGS (8)
  1. HUMIRA [Suspect]
     Indication: CROHN^S DISEASE
     Route: 058
     Dates: start: 2009
  2. SYNTHROID [Concomitant]
     Indication: PRODUCT USED FOR UNKNOWN INDICATION
  3. SYNTHROID [Concomitant]
     Dosage: 200 MG DAILY
  4. SYNTHROID [Concomitant]
     Dosage: 200 MG DAILY FOR SIX DAY, 100 MG DAILY FOR ONE DAY EACH WEEK
  5. PREDNISONE [Concomitant]
     Indication: CROHN^S DISEASE
  6. PENTASA [Concomitant]
     Indication: CROHN^S DISEASE
     Dosage: 4000 MG DAILY
  7. CALCITRIOL [Concomitant]
     Indication: PRODUCT USED FOR UNKNOWN INDICATION
  8. RHYTHMOL SR [Concomitant]
     Indication: ATRIAL FIBRILLATION

REACTIONS (1)
  - Atrial fibrillation [Unknown]
